FAERS Safety Report 23433098 (Version 3)
Quarter: 2024Q2

REPORT INFORMATION
  Report Type: Spontaneous
  Country: AU (occurrence: AU)
  Receive Date: 20240123
  Receipt Date: 20240626
  Transmission Date: 20240716
  Serious: Yes (Life-Threatening, Other)
  Sender: FDA-Public Use
  Company Number: None

PATIENT
  Sex: Male

DRUGS (18)
  1. ACETAMINOPHEN [Interacting]
     Active Substance: ACETAMINOPHEN
     Indication: Suicide attempt
     Dosage: UNK
     Route: 065
  2. ACETAMINOPHEN [Interacting]
     Active Substance: ACETAMINOPHEN
     Indication: Intentional overdose
     Dosage: UNK
     Route: 065
  3. ESOMEPRAZOLE MAGNESIUM [Interacting]
     Active Substance: ESOMEPRAZOLE MAGNESIUM
     Indication: Intentional overdose
     Route: 065
  4. VALSARTAN [Interacting]
     Active Substance: VALSARTAN
     Indication: Suicide attempt
     Route: 065
  5. VALSARTAN [Interacting]
     Active Substance: VALSARTAN
     Indication: Intentional overdose
  6. MOCLOBEMIDE [Interacting]
     Active Substance: MOCLOBEMIDE
     Indication: Intentional overdose
     Route: 065
  7. MOCLOBEMIDE [Interacting]
     Active Substance: MOCLOBEMIDE
     Indication: Suicide attempt
  8. AMLODIPINE [Interacting]
     Active Substance: AMLODIPINE BESYLATE
     Indication: Suicide attempt
     Route: 065
  9. XELJANZ [Interacting]
     Active Substance: TOFACITINIB CITRATE
     Indication: Suicide attempt
     Route: 048
  10. ESCITALOPRAM OXALATE [Interacting]
     Active Substance: ESCITALOPRAM OXALATE
     Indication: Suicide attempt
     Route: 065
  11. ESCITALOPRAM OXALATE [Interacting]
     Active Substance: ESCITALOPRAM OXALATE
     Indication: Intentional overdose
     Route: 065
  12. VENLAFAXINE HYDROCHLORIDE [Interacting]
     Active Substance: VENLAFAXINE HYDROCHLORIDE
     Indication: Intentional overdose
     Route: 065
  13. TRAMADOL HYDROCHLORIDE [Interacting]
     Active Substance: TRAMADOL HYDROCHLORIDE
     Indication: Suicide attempt
     Route: 065
  14. FLUOXETINE HYDROCHLORIDE [Interacting]
     Active Substance: FLUOXETINE HYDROCHLORIDE
     Indication: Intentional overdose
     Route: 065
  15. FLUOXETINE HYDROCHLORIDE [Interacting]
     Active Substance: FLUOXETINE HYDROCHLORIDE
     Indication: Suicide attempt
     Route: 065
  16. AMLODIPINE BESYLATE\VALSARTAN [Interacting]
     Active Substance: AMLODIPINE BESYLATE\VALSARTAN
     Indication: Intentional overdose
     Route: 065
  17. ESOMEPRAZOLE MAGNESIUM [Interacting]
     Active Substance: ESOMEPRAZOLE MAGNESIUM
     Indication: Intentional overdose
     Route: 065
  18. ESOMEPRAZOLE MAGNESIUM [Interacting]
     Active Substance: ESOMEPRAZOLE MAGNESIUM
     Route: 048

REACTIONS (7)
  - Acute kidney injury [Unknown]
  - Major depression [Unknown]
  - Serotonin syndrome [Unknown]
  - Suicide attempt [Unknown]
  - Metabolic acidosis [Unknown]
  - Physical deconditioning [Unknown]
  - Intentional overdose [Unknown]
